FAERS Safety Report 14403363 (Version 3)
Quarter: 2018Q1

REPORT INFORMATION
  Report Type: Spontaneous
  Country: CN (occurrence: CN)
  Receive Date: 20180117
  Receipt Date: 20180208
  Transmission Date: 20180509
  Serious: Yes (Death, Life-Threatening, Other)
  Sender: FDA-Public Use
  Company Number: CN-ASTRAZENECA-2018SE05758

PATIENT
  Age: 75 Year
  Sex: Female
  Weight: 60 kg

DRUGS (14)
  1. TIENAM [Concomitant]
     Active Substance: CILASTATIN SODIUM\IMIPENEM
     Indication: INFECTION
     Route: 042
  2. TEICOPLANIN [Concomitant]
     Active Substance: TEICOPLANIN
     Indication: INFECTION
     Route: 042
  3. OLANZAPINE. [Suspect]
     Active Substance: OLANZAPINE
     Indication: SEDATIVE THERAPY
     Dosage: 2.5MG UNKNOWN
     Route: 065
     Dates: end: 20180108
  4. ENOXAPARIN LOVENOX [Concomitant]
     Indication: ANTICOAGULANT THERAPY
     Dosage: 4000XZI
     Route: 042
     Dates: end: 20180107
  5. IVABRADINE [Concomitant]
     Active Substance: IVABRADINE
     Indication: ARRHYTHMIA
  6. CRESTOR [Suspect]
     Active Substance: ROSUVASTATIN CALCIUM
     Indication: ACUTE MYOCARDIAL INFARCTION
     Route: 048
     Dates: end: 20180108
  7. ASPIRIN. [Suspect]
     Active Substance: ASPIRIN
     Indication: ANTICOAGULANT THERAPY
     Route: 065
  8. OLANZAPINE. [Suspect]
     Active Substance: OLANZAPINE
     Indication: SEDATIVE THERAPY
     Dosage: 10.0MG UNKNOWN
     Route: 065
     Dates: start: 20180104
  9. BISACODYL. [Concomitant]
     Active Substance: BISACODYL
     Indication: CONSTIPATION
     Dates: end: 20180111
  10. IVABRADINE [Concomitant]
     Active Substance: IVABRADINE
     Indication: ARRHYTHMIA
     Dates: end: 20180108
  11. BRILINTA [Suspect]
     Active Substance: TICAGRELOR
     Indication: ACUTE CORONARY SYNDROME
     Route: 048
     Dates: end: 20180111
  12. IVABRADINE [Concomitant]
     Active Substance: IVABRADINE
     Indication: ARRHYTHMIA
  13. TAZOCIN [Concomitant]
     Active Substance: PIPERACILLIN SODIUM\TAZOBACTAM SODIUM
     Indication: INFLAMMATION
     Route: 042
     Dates: end: 20180109
  14. NEXIUM [Suspect]
     Active Substance: ESOMEPRAZOLE MAGNESIUM
     Indication: GASTROOESOPHAGEAL REFLUX DISEASE
     Route: 048
     Dates: end: 20180111

REACTIONS (14)
  - Coma hepatic [Unknown]
  - Hypoxic-ischaemic encephalopathy [Fatal]
  - Acute myocardial infarction [Unknown]
  - Cardiac arrest [Unknown]
  - Ischaemic hepatitis [Fatal]
  - Pulmonary oedema [Fatal]
  - Lacunar infarction [Fatal]
  - Bronchitis chronic [Fatal]
  - Multiple organ dysfunction syndrome [Fatal]
  - Infection [Unknown]
  - Pneumonia [Unknown]
  - Hepatic failure [Unknown]
  - Emphysema [Unknown]
  - Arrhythmia [Unknown]

NARRATIVE: CASE EVENT DATE: 20180108
